FAERS Safety Report 9365012 (Version 3)
Quarter: 2013Q3

REPORT INFORMATION
  Report Type: Spontaneous
  Country: US (occurrence: US)
  Receive Date: 20130624
  Receipt Date: 20130725
  Transmission Date: 20140515
  Serious: No
  Sender: FDA-Public Use
  Company Number: US-PFIZER INC-2013187573

PATIENT
  Age: 45 Year
  Sex: Female
  Weight: 99.77 kg

DRUGS (11)
  1. NEURONTIN [Suspect]
     Indication: NEURALGIA
     Dosage: 1200 MG, 3X/DAY
     Dates: start: 2010
  2. NEURONTIN [Suspect]
     Indication: FIBROMYALGIA
  3. NEURONTIN [Suspect]
     Indication: OSTEOARTHRITIS
  4. PROMETHAZINE HCL [Suspect]
     Indication: PAIN
     Dosage: 25 MG, AS NEEDED
  5. PERCOCET [Suspect]
     Indication: PAIN
     Dosage: 10/325 MG, AS NEEDED
  6. OMEPRAZOLE [Concomitant]
     Indication: GASTRIC DISORDER
     Dosage: 40 MG, 2X/DAY
  7. CYMBALTA [Concomitant]
     Dosage: 60 MG, 2X/DAY
  8. MELOXICAM [Concomitant]
     Dosage: 15 MG, 1X/DAY
  9. TOPAMAX [Concomitant]
     Indication: MIGRAINE
     Dosage: 50 MG, 2X/DAY
  10. VENLAFAXINE [Concomitant]
     Dosage: 75 MG, 2X/DAY
  11. ESTRADIOL [Concomitant]
     Indication: MENOPAUSE
     Dosage: 1 MG, 1X/DAY

REACTIONS (5)
  - Off label use [Unknown]
  - Intentional drug misuse [Unknown]
  - Feeling abnormal [Unknown]
  - Memory impairment [Unknown]
  - Disturbance in attention [Unknown]
